FAERS Safety Report 5477312-6 (Version None)
Quarter: 2007Q4

REPORT INFORMATION
  Report Type: 
  Country: None (occurrence: None)
  Receive Date: 20071004
  Receipt Date: 20070926
  Transmission Date: 20080405
  Serious: Yes (Other)
  Sender: FDA-Public Use
  Company Number: AU-ASTRAZENECA-2007AP06225

PATIENT

DRUGS (2)
  1. NEXIUM [Suspect]
  2. BETA BLOCKER [Suspect]

REACTIONS (1)
  - RENAL DISORDER [None]
